FAERS Safety Report 19972703 (Version 1)
Quarter: 2021Q4

REPORT INFORMATION
  Report Type: Spontaneous
  Country: US (occurrence: US)
  Receive Date: 20211019
  Receipt Date: 20211019
  Transmission Date: 20220303
  Serious: No
  Sender: FDA-Public Use
  Company Number: US-HORIZON THERAPEUTICS-HZN-2021-003255

PATIENT
  Sex: Female

DRUGS (1)
  1. PROCYSBI [Suspect]
     Active Substance: CYSTEAMINE BITARTRATE
     Indication: Cystinosis
     Dosage: 375 MG, QD (150 GRANULE PACKETS)
     Route: 048

REACTIONS (5)
  - Amino acid level increased [Unknown]
  - Weight fluctuation [Unknown]
  - Intentional product use issue [Unknown]
  - Device connection issue [Unknown]
  - Product leakage [Unknown]
